FAERS Safety Report 16222373 (Version 2)
Quarter: 2025Q3

REPORT INFORMATION
  Report Type: Spontaneous
  Country: US (occurrence: US)
  Receive Date: 20190422
  Receipt Date: 20250930
  Transmission Date: 20251021
  Serious: Yes (Death, Other)
  Sender: MACLEODS
  Company Number: None

PATIENT

DRUGS (1)
  1. LEVOFLOXACIN [Suspect]
     Active Substance: LEVOFLOXACIN
     Indication: Aeromonas infection
     Route: 065

REACTIONS (3)
  - Cardiac arrest [Fatal]
  - Acute hepatic failure [Unknown]
  - Drug ineffective [Fatal]
